FAERS Safety Report 22049278 (Version 1)
Quarter: 2023Q1

REPORT INFORMATION
  Report Type: Spontaneous
  Country: US (occurrence: None)
  Receive Date: 20230228
  Receipt Date: 20230228
  Transmission Date: 20230417
  Serious: Yes (Disabling)
  Sender: FDA-Public Use
  Company Number: None

PATIENT
  Age: 41 Year
  Sex: Male
  Weight: 63 kg

DRUGS (1)
  1. LORAZEPAM [Suspect]
     Active Substance: LORAZEPAM
     Indication: Anxiety
     Dates: start: 20200115

REACTIONS (8)
  - Anxiety [None]
  - Mental disorder [None]
  - Insomnia [None]
  - Tinnitus [None]
  - Suicidal ideation [None]
  - Nervousness [None]
  - Heart rate abnormal [None]
  - Burning sensation [None]

NARRATIVE: CASE EVENT DATE: 20200115
